FAERS Safety Report 17598938 (Version 1)
Quarter: 2020Q1

REPORT INFORMATION
  Report Type: Spontaneous
  Country: NL (occurrence: NL)
  Receive Date: 20200330
  Receipt Date: 20200330
  Transmission Date: 20200409
  Serious: Yes (Other)
  Sender: FDA-Public Use
  Company Number: NL-PFIZER INC-2020129137

PATIENT
  Sex: Female
  Weight: 90 kg

DRUGS (15)
  1. ASPIRINE [Concomitant]
     Active Substance: ASPIRIN
     Dosage: 80 MG, 1X/DAY
  2. PARACETAMOL [Concomitant]
     Active Substance: ACETAMINOPHEN
     Dosage: 1000 MG, UNK (3-4 DD)
  3. LYRICA [Concomitant]
     Active Substance: PREGABALIN
     Dosage: 5 MG, 1X/DAY
  4. MULTIVITAMINES AND MINERALS [Concomitant]
     Active Substance: MINERALS\VITAMINS
     Dosage: 1 DF, 1X/DAY
  5. CITALOPRAM HYDROCHLORIDE [Concomitant]
     Active Substance: CITALOPRAM HYDROCHLORIDE
     Dosage: 20 MG, 1X/DAY
  6. HYDROXYZINE HYDROCHLORIDE. [Concomitant]
     Active Substance: HYDROXYZINE HYDROCHLORIDE
     Dosage: 75 MG, 1X/DAY
  7. HYDROCHLOORTHIAZIDE [Concomitant]
     Active Substance: HYDROCHLOROTHIAZIDE
     Dosage: 25 MG, 1X/DAY
  8. APIXABAN [Concomitant]
     Active Substance: APIXABAN
     Dosage: UNK (2DD 5MG OF 2,5MG)
  9. TACAL D3 [Concomitant]
     Dosage: 500 MG, 1X/DAY
  10. BISACODILO [Concomitant]
     Dosage: 15 MG, 1X/DAY
  11. OMEPRAZOL [Concomitant]
     Active Substance: OMEPRAZOLE
     Dosage: 40 MG, 1X/DAY
  12. SULFASALAZINE. [Suspect]
     Active Substance: SULFASALAZINE
     Indication: RHEUMATOID ARTHRITIS
     Dosage: 1 DF, 2X/DAY
     Dates: start: 20191213, end: 20200110
  13. PROPANOLOL HYDROCHLORIDE [Concomitant]
     Active Substance: PROPRANOLOL HYDROCHLORIDE
     Dosage: 10 MG, 3X/DAY
  14. KURKUMA MIT WEIHRAUCH [Concomitant]
     Dosage: 1 DF, 1X/DAY
  15. TEMAZEPAM. [Concomitant]
     Active Substance: TEMAZEPAM
     Dosage: 20 MG, 1X/DAY

REACTIONS (1)
  - Polyneuropathy [Not Recovered/Not Resolved]
